FAERS Safety Report 25581473 (Version 1)
Quarter: 2025Q3

REPORT INFORMATION
  Report Type: Spontaneous
  Country: US (occurrence: US)
  Receive Date: 20250718
  Receipt Date: 20250718
  Transmission Date: 20251021
  Serious: No
  Sender: NOVO NORDISK
  Company Number: US-NOVOPROD-1385333

PATIENT
  Sex: Female

DRUGS (3)
  1. WEGOVY [Suspect]
     Active Substance: SEMAGLUTIDE
     Indication: Weight control
     Dosage: 0.5 MG, QW
     Route: 058
     Dates: start: 20250127, end: 20250310
  2. WEGOVY [Suspect]
     Active Substance: SEMAGLUTIDE
     Dates: start: 202502
  3. WEGOVY [Suspect]
     Active Substance: SEMAGLUTIDE

REACTIONS (6)
  - Anxiety [Unknown]
  - Dyspnoea [Unknown]
  - Panic attack [Not Recovered/Not Resolved]
  - Dizziness [Not Recovered/Not Resolved]
  - Injection site swelling [Unknown]
  - Wrong technique in product usage process [Unknown]
